FAERS Safety Report 6559572-3 (Version None)
Quarter: 2010Q1

REPORT INFORMATION
  Report Type: 
  Country: None (occurrence: None)
  Receive Date: 20100129
  Receipt Date: 20090901
  Transmission Date: 20100710
  Serious: No
  Sender: FDA-Public Use
  Company Number: US-ABBOTT-09P-163-0595272-00

PATIENT
  Sex: Female

DRUGS (2)
  1. HUMIRA [Suspect]
     Indication: CROHN'S DISEASE
     Route: 058
     Dates: start: 20090715
  2. FERROUS SULFATE TAB [Suspect]
     Indication: BLOOD IRON DECREASED
     Dates: start: 20090801

REACTIONS (9)
  - ABDOMINAL PAIN UPPER [None]
  - BLOOD IRON DECREASED [None]
  - DRUG DOSE OMISSION [None]
  - FATIGUE [None]
  - GASTROINTESTINAL PAIN [None]
  - MALAISE [None]
  - NAUSEA [None]
  - PAIN [None]
  - TEARFULNESS [None]
